FAERS Safety Report 13579190 (Version 1)
Quarter: 2017Q2

REPORT INFORMATION
  Report Type: Spontaneous
  Country: US (occurrence: US)
  Receive Date: 20170525
  Receipt Date: 20170525
  Transmission Date: 20170830
  Serious: No
  Sender: FDA-Public Use
  Company Number: US-ACCORD-045110

PATIENT
  Age: 69 Year
  Sex: Female

DRUGS (4)
  1. CELEXA [Concomitant]
     Active Substance: CITALOPRAM HYDROBROMIDE
  2. DETROL [Concomitant]
     Active Substance: TOLTERODINE TARTRATE
  3. FLUOROURACIL. [Suspect]
     Active Substance: FLUOROURACIL
     Indication: ECTROPION
     Dosage: STRENGTH: 0.6 ML?ONE TIME DOSE
     Route: 026
     Dates: start: 20160913, end: 20160913
  4. LIDOCAINE. [Suspect]
     Active Substance: LIDOCAINE
     Indication: ECTROPION
     Dosage: ONE TIME DOSE
     Route: 026
     Dates: start: 20160913, end: 20160913

REACTIONS (2)
  - Off label use [Unknown]
  - Muscle twitching [Recovered/Resolved]

NARRATIVE: CASE EVENT DATE: 20160917
